FAERS Safety Report 7322535-4 (Version None)
Quarter: 2011Q1

REPORT INFORMATION
  Report Type: 
  Country: None (occurrence: None)
  Receive Date: 20110301
  Receipt Date: 20110223
  Transmission Date: 20110831
  Serious: Yes (Hospitalization, Other)
  Sender: FDA-Public Use
  Company Number: US-ASTRAZENECA-2007UW02067

PATIENT
  Age: 14723 Day
  Sex: Female
  Weight: 145.6 kg

DRUGS (19)
  1. SEROQUEL [Suspect]
     Indication: BIPOLAR DISORDER
     Dosage: 100 MG TO 600 MG
     Route: 048
     Dates: start: 20010501
  2. HALDOL [Concomitant]
     Dates: start: 20010814
  3. HYDROCODONE BITARTRATE [Concomitant]
     Dosage: 5/500 MG
     Route: 048
     Dates: start: 20020304
  4. WELLBUTRIN [Concomitant]
     Dosage: 100 - 200 MG
     Route: 048
     Dates: start: 19970225
  5. SEROQUEL [Suspect]
     Dosage: 25 MG - 200 MG
     Route: 048
     Dates: start: 20010502
  6. LAMICTAL [Concomitant]
     Dates: start: 20051001
  7. METFORMIN [Concomitant]
     Dosage: 500 - 2000 MG
     Route: 048
     Dates: start: 20040107
  8. DEPAKOTE [Concomitant]
     Dosage: 250 - 1000 MG
     Dates: start: 19970203
  9. BENZTROPINE MESYLATE [Concomitant]
     Route: 048
     Dates: start: 20010719
  10. ABILIFY [Concomitant]
     Dates: start: 20050501
  11. TRAZODONE HCL [Concomitant]
     Dosage: 100 - 200 MG
     Route: 048
     Dates: start: 20011025
  12. SEROQUEL [Suspect]
     Dosage: 25 MG - 200 MG
     Route: 048
     Dates: start: 20010502
  13. GEODON [Concomitant]
     Route: 048
     Dates: start: 20010712
  14. RISPERDAL [Concomitant]
     Dates: start: 20060101
  15. ZYPREXA [Concomitant]
     Route: 048
     Dates: start: 20010712
  16. EFFEXOR [Concomitant]
     Dosage: 37.5 - 150 MG
     Route: 048
     Dates: start: 19970213
  17. GEODON [Concomitant]
     Dates: start: 20050501
  18. ZOLOFT [Concomitant]
  19. SEROQUEL [Suspect]
     Indication: POST-TRAUMATIC STRESS DISORDER
     Dosage: 100 MG TO 600 MG
     Route: 048
     Dates: start: 20010501

REACTIONS (7)
  - GALLBLADDER DISORDER [None]
  - PSORIASIS [None]
  - WEIGHT INCREASED [None]
  - DIABETES MELLITUS INADEQUATE CONTROL [None]
  - CHOLECYSTITIS CHRONIC [None]
  - TYPE 2 DIABETES MELLITUS [None]
  - CHOLELITHIASIS [None]
